FAERS Safety Report 25268683 (Version 1)
Quarter: 2025Q2

REPORT INFORMATION
  Report Type: Report from Study
  Country: CA (occurrence: CA)
  Receive Date: 20250505
  Receipt Date: 20250505
  Transmission Date: 20250716
  Serious: Yes (Hospitalization)
  Sender: ABBVIE
  Company Number: CA-ABBVIE-6262021

PATIENT
  Age: 78 Year
  Sex: Male

DRUGS (1)
  1. VENCLEXTA [Suspect]
     Active Substance: VENETOCLAX
     Indication: Chronic lymphocytic leukaemia
     Dosage: FORM STRENGTH 100 MG ?400MG PO ONCE DAILY X28 DAYS
     Route: 048
     Dates: start: 20230701

REACTIONS (2)
  - Fall [Unknown]
  - COVID-19 [Unknown]

NARRATIVE: CASE EVENT DATE: 20250425
